FAERS Safety Report 8675067 (Version 2)
Quarter: 2012Q4

REPORT INFORMATION
  Report Type: Report from Study
  Country: DE (occurrence: JP)
  Receive Date: 20120720
  Receipt Date: 20121214
  Transmission Date: 20130627
  Serious: Yes (Hospitalization)
  Sender: FDA-Public Use
  Company Number: JP-FRI-1000037074

PATIENT
  Sex: Male

DRUGS (7)
  1. MEMANTINE [Suspect]
     Indication: DEMENTIA ALZHEIMER^S TYPE
     Dosage: 5 mg
     Route: 048
     Dates: start: 20120124, end: 20120220
  2. MEMANTINE [Suspect]
     Dosage: 10 mg
     Route: 048
     Dates: start: 20120221, end: 20120315
  3. MEMANTINE [Suspect]
     Dosage: 15 mg
     Route: 048
     Dates: start: 20120316, end: 20120407
  4. SERMION [Concomitant]
     Indication: DEMENTIA ALZHEIMER^S TYPE
     Dosage: 15 mg
     Route: 048
     Dates: start: 20110510, end: 20120406
  5. GRAMALIL [Concomitant]
     Indication: DEMENTIA ALZHEIMER^S TYPE
     Dosage: 25 mg
     Route: 048
     Dates: start: 20110510
  6. JZOLOFT [Concomitant]
     Indication: DEMENTIA ALZHEIMER^S TYPE
     Dosage: 25 mg
     Route: 048
     Dates: start: 20110510, end: 20120406
  7. SEROQUEL [Concomitant]
     Indication: DEMENTIA ALZHEIMER^S TYPE
     Dosage: 25 mg
     Route: 048
     Dates: start: 20110510

REACTIONS (2)
  - Pancreatitis acute [Not Recovered/Not Resolved]
  - Altered state of consciousness [None]
